FAERS Safety Report 18166120 (Version 2)
Quarter: 2021Q4

REPORT INFORMATION
  Report Type: Spontaneous
  Country: US (occurrence: US)
  Receive Date: 20200818
  Receipt Date: 20211004
  Transmission Date: 20220303
  Serious: No
  Sender: FDA-Public Use
  Company Number: US-OTSUKA-2020_014010

PATIENT
  Age: 19 Year
  Sex: Female
  Weight: 80.28 kg

DRUGS (1)
  1. ABILIFY MAINTENA [Suspect]
     Active Substance: ARIPIPRAZOLE
     Indication: Bipolar disorder
     Dosage: 300 MG, EVERY 28 DAYS
     Route: 030
     Dates: start: 20200210, end: 20200210

REACTIONS (3)
  - Maternal exposure during pregnancy [Unknown]
  - Therapy cessation [Unknown]
  - Underdose [Unknown]

NARRATIVE: CASE EVENT DATE: 20200210
